FAERS Safety Report 6361582-6 (Version None)
Quarter: 2009Q3

REPORT INFORMATION
  Report Type: 
  Country: None (occurrence: None)
  Receive Date: 20090918
  Receipt Date: 20090905
  Transmission Date: 20100115
  Serious: Yes (Hospitalization)
  Sender: FDA-Public Use
  Company Number: PHHY2009JP39459

PATIENT
  Age: 80 Year
  Sex: Male

DRUGS (4)
  1. FASTIC [Suspect]
     Indication: DIABETES MELLITUS
     Dosage: 90 MG/DAY
     Route: 048
     Dates: start: 20090303
  2. FAMOTIDINE D [Concomitant]
  3. VOGLIBOSE [Concomitant]
  4. ALLORINE [Concomitant]
     Dosage: 100 MG, UNK

REACTIONS (1)
  - ATRIOVENTRICULAR BLOCK COMPLETE [None]
